FAERS Safety Report 10336593 (Version 1)
Quarter: 2014Q3

REPORT INFORMATION
  Report Type: Spontaneous
  Country: US (occurrence: US)
  Receive Date: 20140723
  Receipt Date: 20140723
  Transmission Date: 20150326
  Serious: No
  Sender: FDA-Public Use
  Company Number: US-BRISTOL-MYERS SQUIBB COMPANY-20462776

PATIENT
  Sex: Male

DRUGS (2)
  1. PRILOSEC [Suspect]
     Active Substance: OMEPRAZOLE MAGNESIUM
  2. COUMADIN [Suspect]
     Active Substance: WARFARIN SODIUM
     Dosage: COUMADIN 5MG FOR TWELVE YEARS

REACTIONS (2)
  - Gastrooesophageal reflux disease [Unknown]
  - International normalised ratio increased [Unknown]
